FAERS Safety Report 4833853-3 (Version None)
Quarter: 2005Q4

REPORT INFORMATION
  Report Type: 
  Country: None (occurrence: None)
  Receive Date: 20051118
  Receipt Date: 20051118
  Transmission Date: 20060501
  Serious: Yes (Other)
  Sender: FDA-Public Use
  Company Number: None

PATIENT
  Age: 55 Year
  Sex: Female
  Weight: 113.3993 kg

DRUGS (2)
  1. IMITREX [Suspect]
     Indication: HEADACHE
     Dosage: ONE TIME  SQ
     Route: 058
  2. TORADOL [Suspect]
     Dosage: ONE TIME   IM
     Route: 030

REACTIONS (4)
  - BLOOD PRESSURE INCREASED [None]
  - DRUG INEFFECTIVE [None]
  - RETCHING [None]
  - VOMITING [None]
